FAERS Safety Report 5775432-X (Version None)
Quarter: 2008Q2

REPORT INFORMATION
  Report Type: 
  Country: None (occurrence: None)
  Receive Date: 20080613
  Receipt Date: 20080602
  Transmission Date: 20081010
  Serious: Yes (Hospitalization)
  Sender: FDA-Public Use
  Company Number: L08-USA-01990-01

PATIENT
  Age: 86 Year
  Sex: Male

DRUGS (23)
  1. FLUNISOLIDE [Suspect]
     Indication: FATIGUE
  2. SALBUTAMOL (ALBUTEROL) [Suspect]
  3. IPRATROPIUM BROMIDE [Suspect]
  4. MOMETASONE (MOMETASONE) [Suspect]
  5. DENEZEPIL [Suspect]
     Dosage: 10 MG
  6. CYPROHEPTADINE HCL [Suspect]
     Dosage: 4 MG QD
  7. FAMOTIDINE [Suspect]
     Dosage: 40 MG QD
  8. FUROSEMIDE [Suspect]
     Dosage: 20 MG TIW
  9. ISOSORBIDE MONONITRATE [Suspect]
     Dosage: 15 MG QD
  10. MAGNESIUM GLUCONATE (MAGNESIUM GLUCONATE) [Suspect]
     Dosage: 500 MG QD
  11. METOCLOPRAMIDE [Suspect]
     Dosage: 10 MG QID
  12. SERTRALINE [Suspect]
     Dosage: 75 MG QD
  13. SUBLINGUAL NITROGLYCERIN (GLYCERYL TRINITRATE) [Suspect]
     Dosage: 0.4 MG PRN SL
  14. SIMVASTATIN [Suspect]
     Dosage: 40 MG QHS
  15. MODAFINIL [Suspect]
     Indication: APATHY
     Dosage: 200 MG
  16. LEVETIRACETAM [Suspect]
     Indication: CONVULSION PROPHYLAXIS
     Dosage: 500 MG BID
  17. LEVETIRACETAM [Suspect]
     Indication: CONVULSION PROPHYLAXIS
     Dosage: 1000 MG BID
  18. INSULIN SUSPENSION ISOPHANE [Suspect]
     Dosage: 15 UNITS QAM
  19. INSULIN ASPART (INSULIN ASPART) [Suspect]
  20. ASPIRIN [Concomitant]
  21. CLOPIDOGREL [Concomitant]
  22. LISINOPRIL [Concomitant]
  23. METOPROLOL SUCCINATE EXTENDED RELEASE [Concomitant]

REACTIONS (6)
  - ACUTE MYOCARDIAL INFARCTION [None]
  - ANOREXIA [None]
  - DEHYDRATION [None]
  - IMPAIRED GASTRIC EMPTYING [None]
  - NAUSEA [None]
  - ORAL INTAKE REDUCED [None]
